FAERS Safety Report 6410142-7 (Version None)
Quarter: 2009Q4

REPORT INFORMATION
  Report Type: 
  Country: None (occurrence: None)
  Receive Date: 20091022
  Receipt Date: 20091016
  Transmission Date: 20100525
  Serious: Yes (Death)
  Sender: FDA-Public Use
  Company Number: SE-ROCHE-659979

PATIENT

DRUGS (2)
  1. CAPECITABINE [Suspect]
     Dosage: LAST DOSE PRIOR TO SAE: 21 AUGUST 2009, ON DAY 1-14 EVERY 3 WEEKS
     Route: 048
     Dates: start: 20090717
  2. TAXOTERE [Suspect]
     Dosage: INFUSION ON DAY 1,8,15 OF CYCLE OR ON DAY 1,8 IN ALTERNATE 3 WEEEK SCHEDULE
     Route: 042

REACTIONS (1)
  - PNEUMONIA [None]
